FAERS Safety Report 19877694 (Version 2)
Quarter: 2021Q4

REPORT INFORMATION
  Report Type: Spontaneous
  Country: US (occurrence: US)
  Receive Date: 20210923
  Receipt Date: 20211004
  Transmission Date: 20220303
  Serious: Yes (Other)
  Sender: FDA-Public Use
  Company Number: US-TEVA-2021-US-1955452

PATIENT
  Age: 39 Year
  Sex: Female

DRUGS (2)
  1. OMEPRAZOLE [Suspect]
     Active Substance: OMEPRAZOLE
     Indication: Gastrooesophageal reflux disease
     Route: 065
  2. TRIAMCINOLONE [Suspect]
     Active Substance: TRIAMCINOLONE
     Indication: Acute generalised exanthematous pustulosis
     Dosage: 0.1% OINTMENT TWICE PER DAY
     Route: 061

REACTIONS (2)
  - Acute generalised exanthematous pustulosis [Recovered/Resolved]
  - Maternal exposure during pregnancy [Unknown]
